FAERS Safety Report 5712151-X (Version None)
Quarter: 2008Q2

REPORT INFORMATION
  Report Type: 
  Country: None (occurrence: None)
  Receive Date: 20080421
  Receipt Date: 20080421
  Transmission Date: 20081010
  Serious: No
  Sender: FDA-Public Use
  Company Number: None

PATIENT
  Age: 11 Year
  Sex: Male

DRUGS (4)
  1. ASMANEX DPI [Suspect]
     Indication: ASTHMA
     Dosage: 1 PUFF BID INHALED
     Route: 055
  2. SINGULAIR [Concomitant]
  3. CLARITIN [Concomitant]
  4. ALBUTEROL [Concomitant]

REACTIONS (1)
  - MIGRAINE [None]
